FAERS Safety Report 8541578-6 (Version None)
Quarter: 2012Q3

REPORT INFORMATION
  Report Type: 
  Country: None (occurrence: None)
  Receive Date: 20120726
  Receipt Date: 20120719
  Transmission Date: 20120928
  Serious: Yes (Death)
  Sender: FDA-Public Use
  Company Number: ZA-ROCHE-1090473

PATIENT
  Sex: Female

DRUGS (3)
  1. CELLCEPT [Suspect]
     Indication: PRODUCT USED FOR UNKNOWN INDICATION
  2. VALCYTE [Suspect]
     Indication: PRODUCT USED FOR UNKNOWN INDICATION
  3. PROGRAF [Concomitant]

REACTIONS (2)
  - SEPSIS [None]
  - PERITONITIS [None]
